FAERS Safety Report 11250411 (Version 1)
Quarter: 2015Q3

REPORT INFORMATION
  Report Type: Spontaneous
  Country: US (occurrence: US)
  Receive Date: 20150708
  Receipt Date: 20150708
  Transmission Date: 20151125
  Serious: No
  Sender: FDA-Public Use
  Company Number: US-ELI_LILLY_AND_COMPANY-US201009006095

PATIENT
  Age: 24 Year
  Sex: Female

DRUGS (5)
  1. GLUCAGON. [Suspect]
     Active Substance: GLUCAGON
     Dosage: UNK, AS NEEDED
     Route: 065
  2. LEVEMIR [Concomitant]
     Active Substance: INSULIN DETEMIR
     Dosage: UNK, UNKNOWN
     Route: 065
  3. NOVOLOG [Concomitant]
     Active Substance: INSULIN ASPART
     Dosage: UNK, UNKNOWN
     Route: 065
  4. GLUCAGON. [Suspect]
     Active Substance: GLUCAGON
     Dosage: UNK, AS NEEDED
     Route: 065
  5. GLUCAGON. [Suspect]
     Active Substance: GLUCAGON
     Indication: TYPE 1 DIABETES MELLITUS
     Dosage: UNK, AS NEEDED
     Route: 065
     Dates: start: 2000

REACTIONS (5)
  - Drug ineffective [Unknown]
  - Respiratory rate increased [Unknown]
  - Seizure [Unknown]
  - Dyspnoea [Unknown]
  - Hyperhidrosis [Unknown]

NARRATIVE: CASE EVENT DATE: 20100919
